FAERS Safety Report 4393988-9 (Version None)
Quarter: 2004Q3

REPORT INFORMATION
  Report Type: 
  Country: None (occurrence: None)
  Receive Date: 20040701
  Receipt Date: 20040618
  Transmission Date: 20050211
  Serious: Yes (Other)
  Sender: FDA-Public Use
  Company Number: US-JNJFOC-20040605470

PATIENT
  Age: 78 Year
  Sex: Female

DRUGS (2)
  1. REMICADE [Suspect]
     Indication: RHEUMATOID ARTHRITIS
     Dates: start: 20020301
  2. METHOTREXATE [Concomitant]

REACTIONS (1)
  - ATYPICAL MYCOBACTERIAL INFECTION [None]
